FAERS Safety Report 13298837 (Version 1)
Quarter: 2017Q1

REPORT INFORMATION
  Report Type: Spontaneous
  Country: US (occurrence: US)
  Receive Date: 20170306
  Receipt Date: 20170306
  Transmission Date: 20170428
  Serious: Yes (Other)
  Sender: FDA-Public Use
  Company Number: US-BAYER-2017-035253

PATIENT
  Age: 22 Year
  Sex: Female

DRUGS (1)
  1. MIRENA [Suspect]
     Active Substance: LEVONORGESTREL
     Dosage: 20 MCG/24HR, CONT
     Route: 015
     Dates: start: 2009, end: 20170301

REACTIONS (8)
  - Pregnancy with contraceptive device [None]
  - Menorrhagia [Not Recovered/Not Resolved]
  - Device difficult to use [None]
  - Abortion spontaneous [None]
  - Device use issue [None]
  - Drug ineffective [None]
  - Anxiety [Not Recovered/Not Resolved]
  - Device dislocation [None]

NARRATIVE: CASE EVENT DATE: 20170227
